FAERS Safety Report 6696766-0 (Version None)
Quarter: 2010Q2

REPORT INFORMATION
  Report Type: 
  Country: None (occurrence: None)
  Receive Date: 20100421
  Receipt Date: 20100205
  Transmission Date: 20101027
  Serious: No
  Sender: FDA-Public Use
  Company Number: US-000073

PATIENT
  Sex: Female

DRUGS (7)
  1. KUVAN [Suspect]
     Indication: PHENYLKETONURIA
     Dosage: 1200 MG QD ORAL
     Route: 048
     Dates: start: 20091016
  2. LANSOPRAZOLE [Concomitant]
  3. LEVONORGESTREL [Concomitant]
  4. AZELASTINE HCL [Concomitant]
  5. CITALOPRAM [Concomitant]
  6. TREXIMET [Concomitant]
  7. CLONAZEPAM [Concomitant]

REACTIONS (1)
  - GASTROOESOPHAGEAL REFLUX DISEASE [None]
